FAERS Safety Report 7258982-9 (Version None)
Quarter: 2011Q1

REPORT INFORMATION
  Report Type: 
  Country: None (occurrence: None)
  Receive Date: 20110129
  Receipt Date: 20100622
  Transmission Date: 20110831
  Serious: No
  Sender: FDA-Public Use
  Company Number: US-ABBOTT-10P-163-0653050-00

PATIENT
  Age: 51 Year
  Sex: Male

DRUGS (4)
  1. UNKNOWN STEROID [Concomitant]
     Indication: PRODUCT USED FOR UNKNOWN INDICATION
     Route: 061
  2. HUMIRA [Suspect]
     Indication: PSORIASIS
     Dates: start: 20091201
  3. ENBREL [Concomitant]
     Indication: PRODUCT USED FOR UNKNOWN INDICATION
     Dates: end: 20090601
  4. DOVONEX [Concomitant]
     Indication: PRODUCT USED FOR UNKNOWN INDICATION
     Route: 061
     Dates: start: 20090601

REACTIONS (5)
  - DRUG INEFFECTIVE [None]
  - ARTHRALGIA [None]
  - PAIN [None]
  - PRURITUS [None]
  - BACK PAIN [None]
